FAERS Safety Report 6834404-4 (Version None)
Quarter: 2010Q3

REPORT INFORMATION
  Report Type: 
  Country: None (occurrence: None)
  Receive Date: 20100712
  Receipt Date: 20070707
  Transmission Date: 20110219
  Serious: No
  Sender: FDA-Public Use
  Company Number: US-PFIZER INC-2007033281

PATIENT
  Sex: Male
  Weight: 68.04 kg

DRUGS (3)
  1. CHANTIX [Suspect]
     Indication: SMOKING CESSATION THERAPY
     Dates: start: 20070101
  2. VITAMINS [Concomitant]
  3. ANTI-SMOKING AGENTS [Concomitant]
     Indication: SMOKING CESSATION THERAPY
     Dates: start: 20060101

REACTIONS (4)
  - ANXIETY [None]
  - DECREASED APPETITE [None]
  - FEELING ABNORMAL [None]
  - NAUSEA [None]
